FAERS Safety Report 7661757-X (Version None)
Quarter: 2011Q3

REPORT INFORMATION
  Report Type: 
  Country: None (occurrence: None)
  Receive Date: 20110805
  Receipt Date: 20101026
  Transmission Date: 20111222
  Serious: No
  Sender: FDA-Public Use
  Company Number: US-ABBOTT-10P-163-0681433-00

PATIENT
  Sex: Male
  Weight: 74.91 kg

DRUGS (13)
  1. NIASPAN [Suspect]
     Indication: HIGH DENSITY LIPOPROTEIN DECREASED
     Route: 048
     Dates: start: 20100901, end: 20101017
  2. NIASPAN [Suspect]
  3. NIASPAN [Suspect]
     Indication: CORONARY ARTERY DISEASE
     Dates: start: 20101018
  4. THYROID TAB [Concomitant]
     Indication: HYPOTHYROIDISM
  5. ASPIRIN [Concomitant]
     Indication: CORONARY ARTERY DISEASE
     Route: 048
     Dates: start: 20100901
  6. LISINOPRIL [Concomitant]
     Indication: HYPERTENSION
  7. BYSTOLIC [Concomitant]
     Indication: HYPERTENSION
     Dates: end: 20101018
  8. NIASPAN [Suspect]
     Indication: HIGH DENSITY LIPOPROTEIN DECREASED
  9. ASPIRIN [Concomitant]
     Route: 048
     Dates: end: 20101017
  10. VITAMIN TAB [Concomitant]
     Indication: VITAMIN SUPPLEMENTATION
  11. NIASPAN [Suspect]
     Indication: CORONARY ARTERY DISEASE
     Route: 048
     Dates: start: 20080101, end: 20080101
  12. PLAVIX [Concomitant]
     Indication: CORONARY ARTERIAL STENT INSERTION
  13. COQ10 [Concomitant]
     Indication: PRODUCT USED FOR UNKNOWN INDICATION

REACTIONS (4)
  - DRUG INEFFECTIVE [None]
  - FLUSHING [None]
  - INCORRECT DOSE ADMINISTERED [None]
  - WRONG TECHNIQUE IN DRUG USAGE PROCESS [None]
